FAERS Safety Report 7079326-1 (Version None)
Quarter: 2010Q4

REPORT INFORMATION
  Report Type: 
  Country: None (occurrence: None)
  Receive Date: 20101102
  Receipt Date: 20100317
  Transmission Date: 20110411
  Serious: No
  Sender: FDA-Public Use
  Company Number: A0851481A

PATIENT
  Sex: Female

DRUGS (1)
  1. RHYTHMOL [Suspect]
     Route: 048

REACTIONS (1)
  - RASH [None]
